FAERS Safety Report 5392839-3 (Version None)
Quarter: 2007Q3

REPORT INFORMATION
  Report Type: 
  Country: None (occurrence: None)
  Receive Date: 20070720
  Receipt Date: 20070709
  Transmission Date: 20080115
  Serious: Yes (Other)
  Sender: FDA-Public Use
  Company Number: IE-PFIZER INC-2007056827

PATIENT
  Age: 34 Year
  Sex: Female

DRUGS (4)
  1. SALAZOPYRIN [Suspect]
     Indication: COLITIS ULCERATIVE
  2. PREDNISOLONE [Suspect]
     Indication: COLITIS ULCERATIVE
  3. HYDROCORTISONE [Suspect]
     Indication: COLITIS ULCERATIVE
  4. CYCLOSPORINE [Suspect]
     Indication: COLITIS ULCERATIVE
     Route: 048

REACTIONS (4)
  - COLITIS [None]
  - HYPERCOAGULATION [None]
  - NEUTROPHILIA [None]
  - PAIN IN EXTREMITY [None]
